FAERS Safety Report 8078313-4 (Version None)
Quarter: 2012Q1

REPORT INFORMATION
  Report Type: 
  Country: None (occurrence: None)
  Receive Date: 20120123
  Receipt Date: 20120113
  Transmission Date: 20120608
  Serious: Yes (Disabling)
  Sender: FDA-Public Use
  Company Number: AUR-APL-2012-00511

PATIENT
  Age: 43 Year
  Sex: Male
  Weight: 145 kg

DRUGS (13)
  1. CEPHALEXIN [Suspect]
     Indication: STREPTOCOCCUS TEST POSITIVE
     Dosage: UNKNOWN
     Dates: start: 20111230
  2. CITALOPRAM HYDROBROMIDE [Concomitant]
  3. PREGABALIN [Concomitant]
  4. QUININE SULFATE [Concomitant]
  5. HYDROCORTONE [Concomitant]
  6. CANDESARTAN CILEXETIL [Concomitant]
  7. OMEPRAZOLE [Concomitant]
  8. TRAMADOL HCL [Concomitant]
  9. VITAMIN B COMPLEX CAP [Concomitant]
  10. ASPIRIN [Concomitant]
  11. ATORVASTATIN [Concomitant]
  12. ACETAMINOPHEN [Concomitant]
  13. THIAMINE HCL [Concomitant]

REACTIONS (4)
  - DYSPNOEA [None]
  - OEDEMA PERIPHERAL [None]
  - PRURITUS [None]
  - THROAT TIGHTNESS [None]
